FAERS Safety Report 6102066-X (Version None)
Quarter: 2009Q1

REPORT INFORMATION
  Report Type: 
  Country: None (occurrence: None)
  Receive Date: 20090303
  Receipt Date: 20090303
  Transmission Date: 20090719
  Serious: Yes (Other)
  Sender: FDA-Public Use
  Company Number: None

PATIENT
  Sex: Female
  Weight: 58.9676 kg

DRUGS (1)
  1. GEODON [Suspect]
     Indication: PSYCHOTIC DISORDER
     Dosage: 2 AT BEDTIME PO
     Route: 048
     Dates: start: 20090213, end: 20090302

REACTIONS (12)
  - ANOREXIA [None]
  - BALANCE DISORDER [None]
  - CONTUSION [None]
  - DIZZINESS [None]
  - EXTRASYSTOLES [None]
  - FALL [None]
  - HEART RATE INCREASED [None]
  - MYOCARDIAL INFARCTION [None]
  - NAUSEA [None]
  - NERVOUSNESS [None]
  - RASH [None]
  - THERMAL BURN [None]
